FAERS Safety Report 7504248-9 (Version None)
Quarter: 2011Q2

REPORT INFORMATION
  Report Type: 
  Country: None (occurrence: None)
  Receive Date: 20110525
  Receipt Date: 20091122
  Transmission Date: 20111010
  Serious: Yes (Death, Hospitalization, Other)
  Sender: FDA-Public Use
  Company Number: US-BAYER-200940602NA

PATIENT
  Age: 71 Year
  Sex: Female
  Weight: 66 kg

DRUGS (9)
  1. REGULAR INSULIN [Concomitant]
     Dosage: 10 UNITS
     Route: 042
  2. REGULAR INSULIN [Concomitant]
     Dosage: 70/30
     Route: 058
  3. RED BLOOD CELLS [Concomitant]
     Dosage: UNK
     Dates: start: 20040824
  4. FRESH FROZEN PLASMA [Concomitant]
     Dosage: UNK
     Route: 042
     Dates: start: 20040824
  5. TRASYLOL [Suspect]
     Indication: CORONARY ARTERY BYPASS
     Dosage: UNK
     Route: 042
     Dates: start: 20040804, end: 20040804
  6. ZINACEF [Concomitant]
     Dosage: 1.5 GM
  7. ACCURETIC [Concomitant]
     Dosage: 20/12.5 MG DAILY
     Route: 048
  8. HEPARIN [Concomitant]
     Dosage: 20,000 UNITS
  9. CLONIDINE [Concomitant]
     Dosage: 0.1 MG DAILY
     Route: 048

REACTIONS (13)
  - RENAL INJURY [None]
  - ANXIETY [None]
  - DEATH [None]
  - FEAR [None]
  - INJURY [None]
  - PAIN [None]
  - RENAL IMPAIRMENT [None]
  - MULTI-ORGAN FAILURE [None]
  - EMOTIONAL DISTRESS [None]
  - ANHEDONIA [None]
  - RENAL FAILURE [None]
  - STRESS [None]
  - UNEVALUABLE EVENT [None]
